FAERS Safety Report 8824312 (Version 4)
Quarter: 2013Q1

REPORT INFORMATION
  Report Type: Spontaneous
  Country: US (occurrence: US)
  Receive Date: 20121004
  Receipt Date: 20130115
  Transmission Date: 20140127
  Serious: Yes (Hospitalization, Other)
  Sender: FDA-Public Use
  Company Number: US-ASTELLAS-2012US008182

PATIENT
  Age: 59 None
  Sex: Female
  Weight: 46 kg

DRUGS (1)
  1. PROGRAF [Suspect]
     Indication: SYSTEMIC SCLEROSIS
     Dosage: 0.5 MG, TID
     Route: 048
     Dates: start: 199201

REACTIONS (13)
  - Off label use [Unknown]
  - Procedural complication [Unknown]
  - Nerve injury [Unknown]
  - Polymyositis [Unknown]
  - Pulmonary hypertension [Unknown]
  - Renal failure acute [Unknown]
  - Pericardial effusion [Unknown]
  - Gangrene [Unknown]
  - Pneumothorax [Unknown]
  - Muscular weakness [Unknown]
  - Burning sensation [Unknown]
  - Dyspnoea [Unknown]
  - Renal failure [Unknown]
